FAERS Safety Report 6687449-1 (Version None)
Quarter: 2010Q2

REPORT INFORMATION
  Report Type: 
  Country: None (occurrence: None)
  Receive Date: 20100419
  Receipt Date: 20100408
  Transmission Date: 20101027
  Serious: Yes (Other)
  Sender: FDA-Public Use
  Company Number: PHHY2010US22424

PATIENT
  Sex: Female

DRUGS (1)
  1. CGS 20267 [Suspect]
     Dosage: 2.5 MG, QD
     Route: 048
     Dates: start: 20100127

REACTIONS (1)
  - PARKINSON'S DISEASE [None]
